FAERS Safety Report 10104614 (Version 2)
Quarter: 2014Q2

REPORT INFORMATION
  Report Type: Spontaneous
  Country: US (occurrence: US)
  Receive Date: 20140424
  Receipt Date: 20140630
  Transmission Date: 20141212
  Serious: Yes (Death, Hospitalization, Other)
  Sender: FDA-Public Use
  Company Number: US-GILEAD-2014-0100455

PATIENT
  Age: 44 Year
  Sex: Male

DRUGS (17)
  1. LETAIRIS [Suspect]
     Indication: PULMONARY HYPERTENSION
     Dosage: 10 MG, QD
     Route: 065
     Dates: start: 200812, end: 20140403
  2. LETAIRIS [Suspect]
     Indication: CREST SYNDROME
  3. LETAIRIS [Suspect]
     Indication: SCLERODERMA
  4. SILDENAFIL [Concomitant]
     Dosage: UNK
  5. REMODULIN [Concomitant]
     Dosage: UNK
     Dates: start: 201101
  6. O2                                 /00150301/ [Concomitant]
     Dosage: UNK
     Dates: start: 200902
  7. VIAGRA [Concomitant]
  8. LASIX                              /00032601/ [Concomitant]
  9. METOLAZONE [Concomitant]
  10. K-TAB [Concomitant]
  11. ATIVAN [Concomitant]
  12. CELEXA                             /00582602/ [Concomitant]
  13. PRILOSEC                           /00661201/ [Concomitant]
  14. DURAGESIC                          /00070401/ [Concomitant]
  15. HALDOL                             /00027401/ [Concomitant]
  16. SENNA-GEN [Concomitant]
  17. MUCINEX [Concomitant]

REACTIONS (9)
  - Respiratory failure [Fatal]
  - Pulmonary hypertension [Fatal]
  - CREST syndrome [Unknown]
  - Multimorbidity [Unknown]
  - Right ventricular failure [Unknown]
  - Hypophagia [Unknown]
  - Hypotension [Unknown]
  - Drug intolerance [Unknown]
  - Dyspnoea [Unknown]
